FAERS Safety Report 5701591-0 (Version None)
Quarter: 2008Q2

REPORT INFORMATION
  Report Type: 
  Country: None (occurrence: None)
  Receive Date: 20080411
  Receipt Date: 20080407
  Transmission Date: 20081010
  Serious: Yes (Hospitalization)
  Sender: FDA-Public Use
  Company Number: US-SANOFI-SYNTHELABO-D01200802387

PATIENT
  Age: 60 Year

DRUGS (18)
  1. LEUCOVORIN CALCIUM [Suspect]
     Route: 042
  2. SR57746 [Suspect]
     Indication: NEUROLOGICAL SYMPTOM
     Route: 048
  3. NAPROXEN [Concomitant]
     Dates: start: 20070612
  4. METOPROLOL TARTRATE [Concomitant]
     Dates: start: 19970314
  5. MECLIZINE HCL [Concomitant]
     Dates: start: 19960723
  6. LISINOPRIL [Concomitant]
     Dates: start: 20070326
  7. FERROUS SULFATE TAB [Concomitant]
     Dates: start: 20070309
  8. ASPIRIN [Concomitant]
     Dates: start: 19960809
  9. ACETAMINOPHEN [Concomitant]
     Dates: start: 19960730
  10. FLUOROURACIL [Suspect]
     Dosage: 400 MG/M?, IV BOLUS D1+D2 FOLLOWED BY 5-FU 2400 MG/M? OVER 46-HOUR CONTINUOUS INFUSION.
     Route: 042
  11. OXALIPLATIN [Suspect]
     Route: 042
  12. LORAZEPAM [Concomitant]
     Dates: start: 20080212
  13. SIMVASTATIN [Concomitant]
     Dates: start: 20071212
  14. EZETIMIBE [Concomitant]
     Dates: start: 20071212
  15. PROCHLORPERAZINE [Concomitant]
     Dates: start: 20071105
  16. ONDASETRON [Concomitant]
     Dates: start: 20071103
  17. NIFEDIPINE [Concomitant]
     Dates: start: 20070913
  18. NITROGLYCERIN [Concomitant]
     Dates: start: 19981029

REACTIONS (1)
  - CAROTID ARTERY OCCLUSION [None]
